FAERS Safety Report 4829913-3 (Version None)
Quarter: 2005Q4

REPORT INFORMATION
  Report Type: 
  Country: None (occurrence: None)
  Receive Date: 20051117
  Receipt Date: 20051107
  Transmission Date: 20060501
  Serious: Yes (Hospitalization)
  Sender: FDA-Public Use
  Company Number: US-AMGEN-US156987

PATIENT
  Age: 67 Year
  Sex: Female

DRUGS (4)
  1. NEUPOGEN [Suspect]
     Indication: CHEMOTHERAPY
     Dates: start: 20051001
  2. NEULASTA [Suspect]
     Indication: CHEMOTHERAPY
     Dates: start: 20051001
  3. ADRIAMYCIN PFS [Concomitant]
  4. CYTOXAN [Concomitant]

REACTIONS (2)
  - OXYGEN SATURATION DECREASED [None]
  - PULMONARY FIBROSIS [None]
